FAERS Safety Report 13384307 (Version 4)
Quarter: 2017Q3

REPORT INFORMATION
  Report Type: Report from Study
  Country: JP (occurrence: JP)
  Receive Date: 20170329
  Receipt Date: 20170810
  Transmission Date: 20171127
  Serious: Yes (Hospitalization)
  Sender: FDA-Public Use
  Company Number: JP-EISAI MEDICAL RESEARCH-EC-2017-026253

PATIENT
  Age: 83 Year
  Sex: Female

DRUGS (12)
  1. DOPACOL [Suspect]
     Active Substance: CARBIDOPA\LEVODOPA
     Indication: DEMENTIA WITH LEWY BODIES
     Route: 048
     Dates: start: 20151209
  2. MILMAG [Concomitant]
     Active Substance: MAGNESIUM HYDROXIDE
  3. XALATAN [Concomitant]
     Active Substance: LATANOPROST
  4. DOMPERIDONE [Concomitant]
     Active Substance: DOMPERIDONE
  5. ATORVASTATIN [Concomitant]
     Active Substance: ATORVASTATIN
  6. ZONISAMIDE. [Suspect]
     Active Substance: ZONISAMIDE
     Indication: DEMENTIA WITH LEWY BODIES
     Dosage: PLACEBO
     Route: 048
     Dates: start: 20160630, end: 20160914
  7. ZONISAMIDE. [Suspect]
     Active Substance: ZONISAMIDE
     Route: 048
     Dates: start: 20161020, end: 20170628
  8. LORAZEPAM. [Suspect]
     Active Substance: LORAZEPAM
     Indication: THERAPEUTIC PROCEDURE
     Route: 048
  9. ARICEPT [Suspect]
     Active Substance: DONEPEZIL HYDROCHLORIDE
     Indication: DEMENTIA WITH LEWY BODIES
     Route: 048
     Dates: start: 20151008
  10. ZONISAMIDE. [Suspect]
     Active Substance: ZONISAMIDE
     Indication: PARKINSONISM
     Route: 048
     Dates: start: 20160915, end: 20161019
  11. PROTECADIN OD [Concomitant]
     Active Substance: LAFUTIDINE
  12. LAXOBERON [Concomitant]
     Active Substance: SODIUM PICOSULFATE

REACTIONS (1)
  - Hypotension [Recovering/Resolving]

NARRATIVE: CASE EVENT DATE: 20170320
